FAERS Safety Report 7931623-0 (Version None)
Quarter: 2011Q4

REPORT INFORMATION
  Report Type: 
  Country: None (occurrence: None)
  Receive Date: 20111121
  Receipt Date: 20111107
  Transmission Date: 20120403
  Serious: Yes (Other)
  Sender: FDA-Public Use
  Company Number: PHHY2011CA098584

PATIENT
  Sex: Female

DRUGS (1)
  1. SANDOSTATIN LAR [Suspect]
     Indication: PANCREATIC NEOPLASM
     Dosage: 30 MG, EVERY 4 WEEKS
     Route: 030
     Dates: start: 20110715

REACTIONS (6)
  - HEPATIC MASS [None]
  - MUSCLE SPASMS [None]
  - DIZZINESS [None]
  - HEPATIC PAIN [None]
  - HOT FLUSH [None]
  - ASTHENIA [None]
